FAERS Safety Report 9511814 (Version 1)
Quarter: 2013Q1

REPORT INFORMATION
  Report Type: Spontaneous
  Country: US (occurrence: None)
  Receive Date: 20130305
  Receipt Date: 20130305
  Transmission Date: 20140127
  Serious: Yes (Other)
  Sender: FDA-Public Use
  Company Number: 163-21880-12103531

PATIENT
  Age: 73 Year
  Sex: Female

DRUGS (14)
  1. REVLIMID [Suspect]
     Indication: PLASMA CELL MYELOMA
     Dosage: 25 MG, 21 IN 21 D, PO
     Route: 048
     Dates: start: 20120417, end: 20120724
  2. SYNTHROID (LEVOTHYROXINE SODIUM) (UNKNOWN) [Concomitant]
  3. HCTZ (HYDROCHLOROTHIAZIDE) (UNKNOWN) [Concomitant]
  4. VITAMIN D3 (COLECALCIFEROL) (UNKNOWN) [Concomitant]
  5. ASPIRIN (ACETYLSALICYLIC ACID) (UNKNOWN) (ACETYLSALICYLIC ACID) [Concomitant]
  6. PREMARIN (ESTROGENS CONJUGATED) (CREAM) [Concomitant]
  7. XANAX (ALPRAZOLAM) (UNKNOWN) [Concomitant]
  8. DEXAMETHASONE (DEXAMETHASONE) (UNKNOWN) [Concomitant]
  9. PRILOSEC (OMEPRAZOLE) (UNKNOWN) [Concomitant]
  10. KLORCON (POTASSIUM CHLORIDE) (UNKNOWN) [Concomitant]
  11. AZO (AZITHROMYCIN) (UNKNOWN) [Concomitant]
  12. MIRALAX (MACROGOL) (UNKNOWN) [Concomitant]
  13. FLAXSEED (LINSEED OIL) (UNKNOWN) [Concomitant]
  14. CURCUMIN (CURCUMIN) (UNKNOWN) [Concomitant]

REACTIONS (1)
  - Pancytopenia [None]
